FAERS Safety Report 20264755 (Version 1)
Quarter: 2021Q4

REPORT INFORMATION
  Report Type: Spontaneous
  Country: CN (occurrence: CN)
  Receive Date: 20211231
  Receipt Date: 20211231
  Transmission Date: 20220303
  Serious: Yes (Other)
  Sender: FDA-Public Use
  Company Number: CN-GLAXOSMITHKLINE-CN2021APC263359

PATIENT
  Sex: Male
  Weight: 67 kg

DRUGS (4)
  1. BELIMUMAB [Suspect]
     Active Substance: BELIMUMAB
     Indication: Systemic lupus erythematosus
     Dosage: 600 MG, QD
     Route: 041
     Dates: start: 20211014
  2. BELIMUMAB [Suspect]
     Active Substance: BELIMUMAB
     Dosage: 600 MG, QD
     Route: 041
     Dates: start: 20211029, end: 20211029
  3. MYCOPHENOLATE MOFETIL DISPERSIBLE TABLETS [Concomitant]
     Indication: Systemic lupus erythematosus
     Dosage: 0.50 G, BID
     Route: 048
     Dates: start: 20211029, end: 20211201
  4. SODIUM CHLORIDE [Concomitant]
     Active Substance: SODIUM CHLORIDE
     Indication: Systemic lupus erythematosus
     Dosage: 250 ML, QD
     Route: 041
     Dates: start: 20211029, end: 20211029

REACTIONS (10)
  - Pulmonary tuberculosis [Recovering/Resolving]
  - Mycobacterium test positive [Recovering/Resolving]
  - Bronchopulmonary aspergillosis [Recovering/Resolving]
  - Hyperhidrosis [Recovering/Resolving]
  - Pyrexia [Recovering/Resolving]
  - Pulmonary mass [Recovering/Resolving]
  - Pulmonary calcification [Recovering/Resolving]
  - Condition aggravated [Unknown]
  - Bronchitis [Recovering/Resolving]
  - Pneumonitis [Recovering/Resolving]

NARRATIVE: CASE EVENT DATE: 20210101
